FAERS Safety Report 11923385 (Version 1)
Quarter: 2016Q1

REPORT INFORMATION
  Report Type: Spontaneous
  Country: TR (occurrence: TR)
  Receive Date: 20160118
  Receipt Date: 20160118
  Transmission Date: 20160526
  Serious: Yes (Hospitalization)
  Sender: FDA-Public Use
  Company Number: TR-UCBSA-2016000978

PATIENT
  Sex: Male

DRUGS (2)
  1. KEPPRA [Suspect]
     Active Substance: LEVETIRACETAM
     Indication: MYOCLONIC EPILEPSY
     Dosage: 20 MG/KG/DAY
     Route: 048
  2. KEPPRA [Suspect]
     Active Substance: LEVETIRACETAM
     Dosage: ACCIDENTALLY ADMINISTERED 75 MG/KG/DAY FOR 3 DAYS
     Route: 048

REACTIONS (3)
  - Accidental overdose [Unknown]
  - Toxicity to various agents [Recovered/Resolved]
  - Off label use [Unknown]
